FAERS Safety Report 4288644-1 (Version None)
Quarter: 2004Q1

REPORT INFORMATION
  Report Type: 
  Country: None (occurrence: None)
  Receive Date: 20040205
  Receipt Date: 20040116
  Transmission Date: 20041129
  Serious: Yes (Hospitalization)
  Sender: FDA-Public Use
  Company Number: F01200400105

PATIENT
  Age: 51 Year
  Sex: Female

DRUGS (8)
  1. (OXALIPLATIN)- SOLUTION [Suspect]
     Dosage: INTRAVENOUS NOS
     Route: 042
     Dates: start: 20031119, end: 20031119
  2. (PTK787/ZK 222584 OR PLACEBO) [Suspect]
     Dosage: 1250 MG Q2W, ORAL
     Route: 048
     Dates: start: 20031022, end: 20031023
  3. FLUOROURACIL [Suspect]
     Dosage: INTRAVENOUS NOS
     Route: 042
     Dates: start: 20031119, end: 20031119
  4. ATIVAN [Concomitant]
  5. COMPAZINE [Concomitant]
  6. LOPERAMIDE HCL [Concomitant]
  7. PANTOPRAZOLE [Concomitant]
  8. LEUCOVORIN CALCIUM [Suspect]
     Dates: start: 20031119, end: 20031119

REACTIONS (17)
  - COLORECTAL CANCER [None]
  - DEEP VEIN THROMBOSIS [None]
  - DEHYDRATION [None]
  - DIARRHOEA [None]
  - HYPERCALCAEMIA [None]
  - HYPOKALAEMIA [None]
  - MALIGNANT NEOPLASM PROGRESSION [None]
  - NAUSEA [None]
  - NORMOCHROMIC NORMOCYTIC ANAEMIA [None]
  - PROTEIN TOTAL DECREASED [None]
  - PULMONARY EMBOLISM [None]
  - SEPSIS [None]
  - STAPHYLOCOCCAL INFECTION [None]
  - STREPTOCOCCAL INFECTION [None]
  - THROMBOCYTOPENIA [None]
  - URINARY TRACT INFECTION [None]
  - VOMITING [None]
